FAERS Safety Report 17480716 (Version 2)
Quarter: 2020Q3

REPORT INFORMATION
  Report Type: Report from Study
  Country: None (occurrence: US)
  Receive Date: 20200301
  Receipt Date: 20200904
  Transmission Date: 20201102
  Serious: Yes (Hospitalization, Other)
  Sender: FDA-Public Use
  Company Number: US-ABBVIE-20P-163-3238363-00

PATIENT
  Sex: Female

DRUGS (3)
  1. IMBRUVICA [Suspect]
     Active Substance: IBRUTINIB
     Route: 048
  2. IMBRUVICA [Suspect]
     Active Substance: IBRUTINIB
     Indication: CHRONIC LYMPHOCYTIC LEUKAEMIA
     Route: 048
     Dates: start: 20190119
  3. IMBRUVICA [Suspect]
     Active Substance: IBRUTINIB
     Indication: CHRONIC LYMPHOCYTIC LEUKAEMIA
     Route: 048
     Dates: start: 20190121

REACTIONS (13)
  - Sepsis [Unknown]
  - Ocular discomfort [Unknown]
  - White blood cell count decreased [Unknown]
  - Pneumonia [Unknown]
  - Alopecia [Unknown]
  - Glaucoma [Unknown]
  - Muscle spasms [Unknown]
  - Eye infection [Unknown]
  - Cataract [Unknown]
  - Pulmonary mass [Unknown]
  - Depression [Unknown]
  - Insomnia [Unknown]
  - Nausea [Unknown]
